FAERS Safety Report 10880771 (Version 1)
Quarter: 2015Q1

REPORT INFORMATION
  Report Type: Spontaneous
  Country: US (occurrence: None)
  Receive Date: 20150226
  Receipt Date: 20150226
  Transmission Date: 20150721
  Serious: Yes (Death, Hospitalization)
  Sender: FDA-Public Use
  Company Number: None

PATIENT
  Age: 76 Year
  Sex: Female

DRUGS (6)
  1. METFORMIN [Suspect]
     Active Substance: METFORMIN HYDROCHLORIDE
     Route: 048
  2. ASPIRIN (EQUATE-ACETAMINOPHEN PAIN RELIEVER) [Concomitant]
  3. PRAVASTATIN [Suspect]
     Active Substance: PRAVASTATIN\PRAVASTATIN SODIUM
     Indication: DRUG THERAPY
     Route: 048
     Dates: start: 20140203, end: 20140313
  4. CLOPIDOGREL [Suspect]
     Active Substance: CLOPIDOGREL BISULFATE
     Route: 048
  5. CARVEDILOL 3.125 MG [Suspect]
     Active Substance: CARVEDILOL
     Route: 048
  6. LEVOFLOXACIN 750 MG [Suspect]
     Active Substance: LEVOFLOXACIN
     Route: 048

REACTIONS (2)
  - Activities of daily living impaired [None]
  - Myocardial infarction [None]

NARRATIVE: CASE EVENT DATE: 20140127
